FAERS Safety Report 18883100 (Version 1)
Quarter: 2021Q1

REPORT INFORMATION
  Report Type: Report from Study
  Country: None (occurrence: US)
  Receive Date: 20210212
  Receipt Date: 20210212
  Transmission Date: 20210420
  Serious: Yes (Hospitalization, Other)
  Sender: FDA-Public Use
  Company Number: US-BIOVITRUM-2020US3137

PATIENT
  Sex: Female

DRUGS (3)
  1. KINERET [Suspect]
     Active Substance: ANAKINRA
     Indication: RHEUMATOID ARTHRITIS
     Route: 058
     Dates: start: 20190621
  2. KINERET [Suspect]
     Active Substance: ANAKINRA
     Route: 058
     Dates: start: 20190406
  3. KINERET [Suspect]
     Active Substance: ANAKINRA
     Route: 058
     Dates: start: 20190403

REACTIONS (7)
  - Injection site pain [Unknown]
  - Urinary tract infection [Unknown]
  - Upper limb fracture [Unknown]
  - Facial paralysis [Unknown]
  - Rash pruritic [Unknown]
  - Intentional product misuse [Unknown]
  - Product dose omission issue [Unknown]
